FAERS Safety Report 8421639-2 (Version None)
Quarter: 2012Q2

REPORT INFORMATION
  Report Type: 
  Country: None (occurrence: None)
  Receive Date: 20120608
  Receipt Date: 20120529
  Transmission Date: 20120825
  Serious: Yes (Other)
  Sender: FDA-Public Use
  Company Number: US-US-EMD SERONO, INC.-7024885

PATIENT
  Sex: Female

DRUGS (11)
  1. REBIF [Suspect]
     Indication: RELAPSING-REMITTING MULTIPLE SCLEROSIS
     Route: 058
     Dates: start: 20050322
  2. AMITRIPTYLINE HCL [Concomitant]
     Indication: PRODUCT USED FOR UNKNOWN INDICATION
     Dosage: AT BEDTIME
     Route: 048
  3. VICODIN [Concomitant]
     Indication: PAIN
     Dosage: 5-500 MG, TWO TO THREE TIMES DAILY
     Route: 048
  4. NEXIUM [Concomitant]
     Indication: PRODUCT USED FOR UNKNOWN INDICATION
     Route: 048
  5. CYCLOBENZAPRINE HCL [Concomitant]
     Indication: PRODUCT USED FOR UNKNOWN INDICATION
     Dosage: ONE TO TWO TIMES A DAY AS NEEDED
     Route: 048
  6. EXTRA STRENGTH TYLENOL [Concomitant]
     Indication: PREMEDICATION
     Dosage: 2 TABLETS WITH EVERY DOSE OF REBIF
     Route: 048
  7. LOESTRIN 1.5/30 [Concomitant]
     Indication: PRODUCT USED FOR UNKNOWN INDICATION
     Route: 048
  8. LIDOCAINE [Concomitant]
     Indication: ARTHRALGIA
     Dosage: APPLY ONE PATCH
     Route: 061
  9. REBIF [Suspect]
     Route: 058
     Dates: start: 20090405
  10. NAMENDA [Concomitant]
     Indication: PRODUCT USED FOR UNKNOWN INDICATION
     Route: 048
  11. AMOXICILLIN [Concomitant]
     Indication: PRODUCT USED FOR UNKNOWN INDICATION
     Route: 048

REACTIONS (5)
  - OSTEOPOROSIS [None]
  - FEELING OF BODY TEMPERATURE CHANGE [None]
  - VAGINAL HAEMORRHAGE [None]
  - ABDOMINAL PAIN LOWER [None]
  - DIZZINESS [None]
